FAERS Safety Report 8110489-2 (Version None)
Quarter: 2012Q1

REPORT INFORMATION
  Report Type: 
  Country: None (occurrence: None)
  Receive Date: 20120202
  Receipt Date: 20120125
  Transmission Date: 20120608
  Serious: Yes (Other)
  Sender: FDA-Public Use
  Company Number: US-ASTRAZENECA-2012SE05216

PATIENT
  Age: 14 Year
  Sex: Female
  Weight: 63.5 kg

DRUGS (2)
  1. CITALOPRAM HYDROBROMIDE [Concomitant]
  2. SEROQUEL XR [Suspect]
     Indication: DEPRESSION
     Route: 048
     Dates: start: 20120101

REACTIONS (4)
  - OFF LABEL USE [None]
  - AGGRESSION [None]
  - SUICIDE ATTEMPT [None]
  - PHYSICAL ASSAULT [None]
